FAERS Safety Report 15259019 (Version 1)
Quarter: 2018Q3

REPORT INFORMATION
  Report Type: Spontaneous
  Country: US (occurrence: US)
  Receive Date: 20180718
  Receipt Date: 20180718
  Transmission Date: 20181010
  Serious: Yes (Hospitalization)
  Sender: FDA-Public Use
  Company Number: None

PATIENT
  Age: 75 Year
  Sex: Female

DRUGS (7)
  1. ALBUTEROL. [Concomitant]
     Active Substance: ALBUTEROL
  2. ATROVENT [Concomitant]
     Active Substance: IPRATROPIUM BROMIDE
  3. CENTRUM [Suspect]
     Active Substance: VITAMINS
  4. FLUORODORT [Concomitant]
  5. SODIUM CHLOR [Concomitant]
     Active Substance: SODIUM CHLORIDE
  6. EYE DROPS [Concomitant]
     Active Substance: UNSPECIFIED INGREDIENT
  7. OCALIVA [Suspect]
     Active Substance: OBETICHOLIC ACID
     Indication: PRIMARY BILIARY CHOLANGITIS
     Route: 048
     Dates: start: 20171205

REACTIONS (2)
  - Fall [None]
  - Hip fracture [None]

NARRATIVE: CASE EVENT DATE: 20180703
